FAERS Safety Report 7716374-X (Version None)
Quarter: 2011Q3

REPORT INFORMATION
  Report Type: 
  Country: None (occurrence: None)
  Receive Date: 20110829
  Receipt Date: 20110822
  Transmission Date: 20111222
  Serious: Yes (Other)
  Sender: FDA-Public Use
  Company Number: PHHY2011GB75161

PATIENT
  Sex: Female

DRUGS (1)
  1. PROPAIN PLUS [Suspect]
     Indication: PAIN

REACTIONS (2)
  - DISABILITY [None]
  - BEDRIDDEN [None]
